FAERS Safety Report 11932522 (Version 1)
Quarter: 2016Q1

REPORT INFORMATION
  Report Type: Spontaneous
  Country: JP (occurrence: JP)
  Receive Date: 20160120
  Receipt Date: 20160120
  Transmission Date: 20160526
  Serious: Yes (Hospitalization, Other)
  Sender: FDA-Public Use
  Company Number: JP-IMPAX LABORATORIES, INC-2016-IPXL-00038

PATIENT
  Age: 54 Year
  Sex: Female

DRUGS (4)
  1. BEVACIZUMAB [Suspect]
     Active Substance: BEVACIZUMAB
     Indication: COLON CANCER STAGE IV
     Dosage: UNK UNK, 2 /WEEK
     Route: 065
  2. OXALIPLATIN. [Suspect]
     Active Substance: OXALIPLATIN
     Indication: COLON CANCER STAGE IV
     Dosage: UNK UNK, 2 /WEEK
     Route: 065
  3. LEUCOVORIN CALCIUM. [Suspect]
     Active Substance: LEUCOVORIN CALCIUM
     Indication: COLON CANCER STAGE IV
     Dosage: UNK, 2 /WEEK
     Route: 065
  4. FLUOROURACIL. [Suspect]
     Active Substance: FLUOROURACIL
     Indication: COLON CANCER STAGE IV
     Dosage: UNK UNK, 2 /WEEK
     Route: 065

REACTIONS (4)
  - Hypertension [Unknown]
  - Condition aggravated [Unknown]
  - Large intestinal obstruction [Unknown]
  - Neutropenia [Unknown]
